FAERS Safety Report 15883549 (Version 1)
Quarter: 2019Q1

REPORT INFORMATION
  Report Type: Spontaneous
  Country: US (occurrence: US)
  Receive Date: 20190129
  Receipt Date: 20190129
  Transmission Date: 20190417
  Serious: No
  Sender: FDA-Public Use
  Company Number: US-AUROBINDO-AUR-APL-2018-044165

PATIENT
  Sex: Male

DRUGS (1)
  1. DULOXETINE DELAYED-RELEASE CAPSULES USP 60 MG [Suspect]
     Active Substance: DULOXETINE HYDROCHLORIDE
     Indication: PRODUCT USED FOR UNKNOWN INDICATION
     Dosage: UNK UNK, ONCE A DAY

REACTIONS (1)
  - Somnolence [Unknown]
